FAERS Safety Report 12787142 (Version 1)
Quarter: 2016Q3

REPORT INFORMATION
  Report Type: Spontaneous
  Country: US (occurrence: US)
  Receive Date: 20160927
  Receipt Date: 20160927
  Transmission Date: 20161109
  Serious: Yes (Other)
  Sender: FDA-Public Use
  Company Number: US-TEVA-695885USA

PATIENT
  Sex: Female
  Weight: 56.75 kg

DRUGS (1)
  1. ZOLPIDEM [Suspect]
     Active Substance: ZOLPIDEM\ZOLPIDEM TARTRATE
     Indication: INSOMNIA
     Dates: start: 20160911

REACTIONS (3)
  - Fluid retention [Unknown]
  - Abdominal distension [Unknown]
  - Coeliac disease [Unknown]
